FAERS Safety Report 9143137 (Version 2)
Quarter: 2013Q3

REPORT INFORMATION
  Report Type: Report from Study
  Country: US (occurrence: US)
  Receive Date: 20130306
  Receipt Date: 20130802
  Transmission Date: 20140515
  Serious: Yes (Other)
  Sender: FDA-Public Use
  Company Number: US-B.I. PHARMACEUTICALS,INC./RIDGEFIELD-2013-BI-05250GD

PATIENT
  Age: 87 Year
  Sex: Female
  Weight: 46.8 kg

DRUGS (2)
  1. PRADAXA [Suspect]
     Dosage: 300 MG
     Route: 048
  2. AMIODARONE [Suspect]

REACTIONS (2)
  - Erosive oesophagitis [Unknown]
  - Drug interaction [Unknown]
